FAERS Safety Report 6905359-9 (Version None)
Quarter: 2010Q3

REPORT INFORMATION
  Report Type: 
  Country: None (occurrence: None)
  Receive Date: 20100802
  Receipt Date: 20100727
  Transmission Date: 20110219
  Serious: Yes (Death, Life-Threatening, Hospitalization, Disabling)
  Sender: FDA-Public Use
  Company Number: 2010SP041074

PATIENT

DRUGS (2)
  1. INTEGRILIN [Suspect]
     Indication: MYOCARDIAL INFARCTION
     Dosage: IV
     Route: 042
  2. HEPARIN [Suspect]
     Indication: PRODUCT USED FOR UNKNOWN INDICATION
     Dosage: INDRP
     Route: 041

REACTIONS (1)
  - DEATH [None]
